FAERS Safety Report 18999672 (Version 2)
Quarter: 2022Q1

REPORT INFORMATION
  Report Type: Report from Study
  Country: US (occurrence: US)
  Receive Date: 20210311
  Receipt Date: 20220223
  Transmission Date: 20220423
  Serious: No
  Sender: FDA-Public Use
  Company Number: US-NOVARTISTESTPH-NVSC2021US056445

PATIENT
  Age: 58 Year
  Sex: Female

DRUGS (1)
  1. ENTRESTO [Suspect]
     Active Substance: SACUBITRIL\VALSARTAN
     Indication: Cardiac failure
     Dosage: 100 MG, BID (49.51)
     Route: 048
     Dates: start: 20200301

REACTIONS (2)
  - Weight decreased [Unknown]
  - Muscle strain [Recovered/Resolved]

NARRATIVE: CASE EVENT DATE: 20210101
